FAERS Safety Report 24179385 (Version 1)
Quarter: 2024Q3

REPORT INFORMATION
  Report Type: Spontaneous
  Country: US (occurrence: None)
  Receive Date: 20240805
  Receipt Date: 20240805
  Transmission Date: 20241017
  Serious: Yes (Other)
  Sender: Public
  Company Number: None

PATIENT
  Sex: Male

DRUGS (11)
  1. ORENCIA [Suspect]
     Active Substance: ABATACEPT
     Dosage: FREQUENCY : WEEKLY;?
     Route: 058
     Dates: start: 20150707
  2. AMITIZA CAP 24MCG [Concomitant]
  3. ASPIRIN TAB 325MG [Concomitant]
  4. ATORVASTATIN TAB 20MG [Concomitant]
  5. BETAMETH VAL CRE 0.1% [Concomitant]
  6. BUPROPION TAB 150MG [Concomitant]
  7. BUPROPION HYDROCHLORIDE [Concomitant]
     Active Substance: BUPROPION HYDROCHLORIDE
  8. CELEBREX CAP 200MG [Concomitant]
  9. CENTURY TAB [Concomitant]
  10. LISINOP/HCTZ TAB 10-12.5 [Concomitant]
  11. LYRICA CAP 75MG [Concomitant]

REACTIONS (1)
  - Rotator cuff repair [None]
